FAERS Safety Report 4416915-4 (Version None)
Quarter: 2004Q3

REPORT INFORMATION
  Report Type: 
  Country: None (occurrence: None)
  Receive Date: 20040806
  Receipt Date: 20040802
  Transmission Date: 20050211
  Serious: Yes (Hospitalization)
  Sender: FDA-Public Use
  Company Number: 200412905FR

PATIENT
  Age: 60 Year
  Sex: Male

DRUGS (10)
  1. ARAVA [Suspect]
     Indication: RHEUMATOID ARTHRITIS
     Route: 048
  2. REMICADE [Suspect]
     Indication: RHEUMATOID ARTHRITIS
     Route: 042
     Dates: start: 20020311, end: 20040121
  3. NOVATREX [Suspect]
     Indication: RHEUMATOID ARTHRITIS
     Route: 048
     Dates: start: 20020731
  4. CORTANCYL [Concomitant]
     Indication: RHEUMATOID ARTHRITIS
     Route: 048
  5. FOLIC ACID [Concomitant]
     Route: 048
  6. FOSAMAX [Concomitant]
     Route: 048
  7. FIXICAL [Concomitant]
     Route: 048
  8. PRAZOSIN HCL [Concomitant]
     Route: 048
  9. ATACAND [Concomitant]
     Route: 048
  10. ACETAMINOPHEN [Concomitant]
     Route: 048

REACTIONS (1)
  - HODGKIN'S DISEASE [None]
